FAERS Safety Report 5577791-X (Version None)
Quarter: 2007Q4

REPORT INFORMATION
  Report Type: 
  Country: None (occurrence: None)
  Receive Date: 20071227
  Receipt Date: 20071212
  Transmission Date: 20080405
  Serious: Yes (Life-Threatening, Hospitalization)
  Sender: FDA-Public Use
  Company Number: 02100-JPN-07-0675

PATIENT
  Age: 84 Year
  Sex: Male

DRUGS (8)
  1. CILOSTAZOL [Suspect]
     Indication: CEREBRAL INFARCTION
     Dosage: 100 MG
     Route: 048
     Dates: end: 20071015
  2. WARFARIN SODIUM [Suspect]
     Indication: CEREBRAL INFARCTION
     Dosage: 1 MG
     Route: 048
     Dates: end: 20071015
  3. WARFARIN SODIUM [Suspect]
     Indication: CEREBRAL INFARCTION
     Dosage: 1 MG
     Route: 048
     Dates: start: 20071029
  4. GLYBURIDE [Concomitant]
  5. ATENOLOL [Concomitant]
  6. AMLODIPINE BESYLATE [Concomitant]
  7. BIFIDOBACTERIUM [Concomitant]
  8. SENNA LEAF-SEENA POD [Concomitant]

REACTIONS (6)
  - ANAEMIA [None]
  - BLEEDING TIME SHORTENED [None]
  - DIVERTICULITIS INTESTINAL HAEMORRHAGIC [None]
  - PLATELET COUNT DECREASED [None]
  - PROTHROMBIN TIME PROLONGED [None]
  - SHOCK HAEMORRHAGIC [None]
